FAERS Safety Report 5068649-3 (Version None)
Quarter: 2006Q3

REPORT INFORMATION
  Report Type: 
  Country: None (occurrence: None)
  Receive Date: 20060802
  Receipt Date: 20060125
  Transmission Date: 20061208
  Serious: Yes (Hospitalization)
  Sender: FDA-Public Use
  Company Number: US-BRISTOL-MYERS SQUIBB COMPANY-13259486

PATIENT
  Age: 12 Year
  Sex: Male

DRUGS (2)
  1. COUMADIN [Suspect]
     Indication: MITRAL VALVE REPLACEMENT
     Route: 048
  2. ENALAPRIL MALEATE [Concomitant]

REACTIONS (1)
  - INTERNATIONAL NORMALISED RATIO DECREASED [None]
